FAERS Safety Report 6708373-1 (Version None)
Quarter: 2010Q2

REPORT INFORMATION
  Report Type: 
  Country: None (occurrence: None)
  Receive Date: 20100503
  Receipt Date: 20090522
  Transmission Date: 20101027
  Serious: No
  Sender: FDA-Public Use
  Company Number: US-ASTRAZENECA-2009UW09269

PATIENT
  Age: 26291 Day
  Sex: Female
  Weight: 68.5 kg

DRUGS (3)
  1. NEXIUM [Suspect]
     Indication: GASTROOESOPHAGEAL REFLUX DISEASE
     Route: 048
     Dates: start: 20090330, end: 20090331
  2. SYNTHROID [Concomitant]
     Indication: HYPOTHYROIDISM
  3. MINIPRESS [Concomitant]
     Indication: HYPERTENSION

REACTIONS (3)
  - FEELING HOT [None]
  - FLUSHING [None]
  - VEIN DISORDER [None]
